FAERS Safety Report 9379047 (Version 3)
Quarter: 2013Q3

REPORT INFORMATION
  Report Type: Spontaneous
  Country: FR (occurrence: FR)
  Receive Date: 20130702
  Receipt Date: 20130930
  Transmission Date: 20140515
  Serious: Yes (Death)
  Sender: FDA-Public Use
  Company Number: FR-NOVOPROD-381638

PATIENT
  Age: 81 Year
  Sex: Male

DRUGS (14)
  1. NOVOMIX 30 [Suspect]
     Indication: DIABETES MELLITUS
     Dosage: UNKNOWN
     Route: 058
  2. FUROSEMIDE TEVA [Suspect]
     Indication: CARDIAC FAILURE
     Dosage: 80 MG, QD
     Route: 048
     Dates: start: 20130516, end: 20130608
  3. FUROSEMIDE TEVA [Suspect]
     Dosage: 40 MG, QD
     Route: 048
  4. ATORVASTATINE PHR [Suspect]
     Dosage: ONE DOSE DAILY
     Route: 065
  5. ALLOPURINOL PHR [Suspect]
     Dosage: ONE DOSE DAILY
     Route: 048
  6. IRBESARTAN ZENTIVA [Suspect]
     Dosage: 75 MG, QD
     Route: 048
  7. DIFFU K [Suspect]
     Dosage: TWO DOSES DAILY
     Route: 048
  8. SPIRONOLACTONE TEVA [Suspect]
     Dosage: 50 MG, QD
     Route: 048
  9. OMEPRAZOLE [Suspect]
     Dosage: 20 MG, QD
     Route: 048
  10. PAROXETINE [Suspect]
     Dosage: 20 MG, QD
     Route: 048
  11. ALFUZOSINE TEVA [Suspect]
     Dosage: 10 MG, QD
     Route: 048
  12. ZOLPIDEM TEVA [Suspect]
     Dosage: 10 MG, QD
     Route: 048
  13. PARACETAMOL [Suspect]
     Dosage: 3 G, QD
     Route: 048
  14. DICLOFENAC TEVA                    /00372302/ [Concomitant]
     Dosage: UNKNOWN
     Route: 065

REACTIONS (2)
  - Acute pulmonary oedema [Fatal]
  - Cardiac failure [Fatal]
